FAERS Safety Report 7076879-4 (Version None)
Quarter: 2010Q4

REPORT INFORMATION
  Report Type: 
  Country: None (occurrence: None)
  Receive Date: 20101029
  Receipt Date: 20101029
  Transmission Date: 20110411
  Serious: Yes (Life-Threatening, Other)
  Sender: FDA-Public Use
  Company Number: None

PATIENT
  Age: 53 Year
  Sex: Female
  Weight: 52 kg

DRUGS (2)
  1. PACLITAXEL 300 MG/50 ML APP LOTJD0030 2/2012 [Suspect]
     Indication: OVARIAN CANCER
     Dosage: 350 MG ONCE IV
     Route: 042
     Dates: start: 20101012, end: 20101012
  2. PACLITAXEL 100 MG/16.7 ML APP LOTJD9049 5/2011 [Suspect]

REACTIONS (2)
  - ANAPHYLACTIC REACTION [None]
  - CARDIO-RESPIRATORY ARREST [None]
